FAERS Safety Report 4666004-9 (Version None)
Quarter: 2005Q2

REPORT INFORMATION
  Report Type: 
  Country: None (occurrence: None)
  Receive Date: 20050419
  Receipt Date: 20041101
  Transmission Date: 20051028
  Serious: Yes (Other)
  Sender: FDA-Public Use
  Company Number: HQWYE216303NOV04

PATIENT
  Age: 38 Year
  Sex: Female

DRUGS (1)
  1. ZOSYN [Suspect]
     Dosage: UNKNOWN, INTRAVENOUS
     Route: 042

REACTIONS (1)
  - PANCYTOPENIA [None]
